FAERS Safety Report 17850494 (Version 1)
Quarter: 2020Q2

REPORT INFORMATION
  Report Type: Spontaneous
  Country: FR (occurrence: FR)
  Receive Date: 20200602
  Receipt Date: 20200602
  Transmission Date: 20200714
  Serious: Yes (Hospitalization)
  Sender: FDA-Public Use
  Company Number: FR-TEVA-2020-FR-1242269

PATIENT
  Age: 52 Year
  Sex: Female
  Weight: 55 kg

DRUGS (49)
  1. VITAMINE A [Suspect]
     Active Substance: RETINOL
     Indication: KERATITIS
     Dosage: 25000 IU
     Route: 048
  2. SMECTA [Concomitant]
     Active Substance: MONTMORILLONITE
     Indication: DIARRHOEA
     Dosage: NOT COMMUNICATED
     Route: 048
     Dates: start: 2016, end: 2016
  3. VANCOMYCINE [Concomitant]
     Active Substance: VANCOMYCIN
     Indication: INFECTION
     Dosage: 2400 MG
     Route: 042
     Dates: start: 2016, end: 2016
  4. NIVESTIM [Concomitant]
     Active Substance: FILGRASTIM
     Indication: NEUTROPENIA
     Dosage: NOT COMMUNICATED
     Route: 042
     Dates: start: 2016, end: 2016
  5. HALDOL [Concomitant]
     Active Substance: HALOPERIDOL
     Indication: HALLUCINATION
     Dosage: UNSPECIFIED
     Route: 048
  6. ZOPHREN [Concomitant]
     Active Substance: ONDANSETRON
     Indication: VOMITING
     Dosage: 8 MG / 4 ML (1 AMPOULE / 24 H)
     Dates: start: 2016
  7. PARACETAMOL [Suspect]
     Active Substance: ACETAMINOPHEN
     Indication: PAIN
     Dosage: NOT COMMUNICATED
     Route: 048
     Dates: start: 2016, end: 2016
  8. METHYLPREDNISOLONE. [Concomitant]
     Active Substance: METHYLPREDNISOLONE
     Indication: PRODUCT USED FOR UNKNOWN INDICATION
     Dosage: TOTAL ADMINISTERED DOSE: 1380 MG
     Route: 042
     Dates: start: 2016
  9. VFEND [Concomitant]
     Active Substance: VORICONAZOLE
     Indication: CANDIDA INFECTION
     Dosage: NOT COMMUNICATED
     Route: 042
     Dates: start: 2016, end: 2016
  10. TIORFAN [Concomitant]
     Active Substance: RACECADOTRIL
     Indication: DIARRHOEA
     Dosage: NOT COMMUNICATED
     Route: 048
     Dates: start: 2016, end: 2016
  11. MODAMIDE [Concomitant]
     Active Substance: AMILORIDE HYDROCHLORIDE
     Indication: PRODUCT USED FOR UNKNOWN INDICATION
     Dosage: NOT COMMUNICATED
     Route: 048
     Dates: start: 2016, end: 2016
  12. MOVICOL [Concomitant]
     Active Substance: POLYETHYLENE GLYCOL 3350\POTASSIUM CHLORIDE\SODIUM BICARBONATE\SODIUM CHLORIDE
     Indication: CONSTIPATION
     Dosage: NOT COMMUNICATED
     Route: 048
     Dates: start: 2016, end: 2016
  13. TIENAM [Concomitant]
     Active Substance: CILASTATIN SODIUM\IMIPENEM
     Indication: INFECTION
     Dosage: NOT COMMUNICATED
     Route: 042
     Dates: start: 201610
  14. TITANOREINE [Concomitant]
     Active Substance: CARRAGEENAN\TITANIUM\ZINC
     Indication: HAEMORRHOIDS
     Dosage: NOT COMMUNICATED
     Route: 003
     Dates: start: 2016, end: 2016
  15. VINCRISTINE (SULFATE DE) [Concomitant]
     Active Substance: VINCRISTINE SULFATE
     Indication: B-CELL LYMPHOMA
     Dosage: TOTAL ADMINISTERED DOSE: 4 MG
     Route: 042
     Dates: start: 2016
  16. DEBRIDAT 50 MG/5 ML, SOLUTION INJECTABLE EN AMPOULE [Concomitant]
     Indication: PAIN
     Route: 048
     Dates: start: 2016, end: 2016
  17. METHOTREXATE. [Suspect]
     Active Substance: METHOTREXATE
     Indication: B-CELL LYMPHOMA
     Dosage: TOTAL ADMINISTERED DOSE: 11,580 MG
     Route: 042
     Dates: start: 2016
  18. ENDOXAN [Suspect]
     Active Substance: CYCLOPHOSPHAMIDE
     Indication: B-CELL LYMPHOMA
     Dosage: TOTAL ADMINISTERED DOSE: 5775 MG
     Route: 042
     Dates: start: 2016
  19. LAROXYL 50 MG, COMPRIME PELLICULE [Concomitant]
     Active Substance: AMITRIPTYLINE HYDROCHLORIDE
     Indication: PRODUCT USED FOR UNKNOWN INDICATION
     Dosage: 50 MG
     Route: 048
     Dates: end: 2016
  20. FOLINATE DE CALCIUM [Concomitant]
     Active Substance: LEUCOVORIN CALCIUM
     Indication: PRODUCT USED FOR UNKNOWN INDICATION
     Dosage: TOTAL ADMINISTERED DOSE: 1200 MG
     Route: 042
     Dates: start: 2016
  21. ETOPOSIDE. [Concomitant]
     Active Substance: ETOPOSIDE
     Indication: B-CELL LYMPHOMA
     Dosage: TOTAL ADMINISTERED DOSE: 1480 MG
     Route: 042
     Dates: start: 2016
  22. ECONAZOLE. [Concomitant]
     Active Substance: ECONAZOLE NITRATE
     Indication: INTERTRIGO
     Dosage: 150 MG
     Route: 067
     Dates: start: 2016, end: 2016
  23. BISOCE 2,5 MG, COMPRIME PELLICULE SECABLE [Concomitant]
     Active Substance: BISOPROLOL FUMARATE
     Indication: PRODUCT USED FOR UNKNOWN INDICATION
     Dosage: 2.5 MG
     Route: 048
     Dates: start: 2016, end: 2016
  24. HYDROXYZINE (CHLORHYDRATE D^) [Concomitant]
     Active Substance: HYDROXYZINE HYDROCHLORIDE
     Indication: PRODUCT USED FOR UNKNOWN INDICATION
     Dosage: 100 MG
     Route: 042
     Dates: start: 2016, end: 2016
  25. AMIKACINE [Concomitant]
     Active Substance: AMIKACIN
     Indication: INFECTION
     Dosage: UNSPECIFIED
     Route: 042
     Dates: start: 2016, end: 2016
  26. HYDROCORTANCYL [Concomitant]
     Active Substance: PREDNISONE
     Indication: PRODUCT USED FOR UNKNOWN INDICATION
     Dosage: TOTAL ADMINISTERED DOSE: 10 MG
     Route: 042
     Dates: start: 2016
  27. DOXORUBICINE (CHLORHYDRATE DE) [Concomitant]
     Active Substance: DOXORUBICIN
     Indication: B-CELL LYMPHOMA
     Dosage: TOTAL ADMINISTERED DOSE: 231 MG
     Route: 042
     Dates: start: 2016
  28. DIFFU K, GELULE [Concomitant]
     Active Substance: POTASSIUM CHLORIDE
     Indication: HYPOKALAEMIA
     Dosage: 600 MG
     Route: 048
     Dates: start: 2016
  29. CIPROFLOXACINE [Suspect]
     Active Substance: CIPROFLOXACIN
     Indication: PRODUCT USED FOR UNKNOWN INDICATION
     Dosage: 500 MG
     Route: 042
     Dates: start: 2016, end: 2016
  30. KAYEXALATE [Suspect]
     Active Substance: SODIUM POLYSTYRENE SULFONATE
     Indication: HYPERKALAEMIA
     Dosage: NOT COMMUNICATED
     Route: 048
     Dates: start: 2016, end: 2016
  31. TRANXENE [Concomitant]
     Active Substance: CLORAZEPATE DIPOTASSIUM
     Indication: ANXIETY
     Dosage: NOT COMMUNICATED
     Route: 048
     Dates: start: 2016, end: 2016
  32. NEFOPAM (CHLORHYDRATE DE) [Concomitant]
     Active Substance: NEFOPAM HYDROCHLORIDE
     Indication: PAIN
     Dosage: 20 MG, IF PAIN
     Route: 048
     Dates: start: 2016
  33. MEROPENEM ANHYDRE [Concomitant]
     Active Substance: MEROPENEM
     Indication: PNEUMONIA
     Dosage: 3 GRAM
     Route: 042
     Dates: start: 2016, end: 2016
  34. SPIRONOLACTONE. [Concomitant]
     Active Substance: SPIRONOLACTONE
     Indication: PRODUCT USED FOR UNKNOWN INDICATION
     Dosage: 50 MG
     Route: 048
     Dates: start: 2016, end: 2016
  35. TOPALGIC [Concomitant]
     Indication: PAIN
     Dosage: NOT COMMUNICATED
     Route: 048
     Dates: start: 2016, end: 2016
  36. INNOHEP [Concomitant]
     Active Substance: TINZAPARIN SODIUM
     Indication: VENOUS THROMBOSIS
     Dosage: 10,000 IU
     Route: 058
  37. MIDAZOLAM. [Concomitant]
     Active Substance: MIDAZOLAM
     Indication: SEDATION
     Route: 042
     Dates: start: 2016, end: 2016
  38. DIPEPTIVEN, SOLUTION A DILUER POUR PERFUSION [Concomitant]
     Indication: AMINO ACID LEVEL DECREASED
     Dosage: 100 ML
     Route: 042
     Dates: end: 2016
  39. PANTOPRAZOLE [Concomitant]
     Active Substance: PANTOPRAZOLE
     Indication: GASTRIC ULCER
     Dosage: 40 MG
     Route: 042
  40. MABTHERA [Concomitant]
     Active Substance: RITUXIMAB
     Indication: B-CELL LYMPHOMA
     Dosage: TOTAL ADMINISTERED DOSE: 1435 MG
     Route: 042
     Dates: start: 2016
  41. CYMBALTA [Concomitant]
     Active Substance: DULOXETINE HYDROCHLORIDE
     Indication: DEPRESSION
     Dosage: 60 MG
     Route: 048
  42. DEPOCYTE 50 MG, SUSPENSION INJECTABLE [Concomitant]
     Indication: B-CELL LYMPHOMA
     Dosage: 50 MG
     Route: 042
     Dates: start: 20160912, end: 20160912
  43. LASILIX FAIBLE 20 MG, COMPRIME [Suspect]
     Active Substance: FUROSEMIDE
     Indication: PRODUCT USED FOR UNKNOWN INDICATION
     Dosage: 20 MG
     Route: 048
     Dates: start: 2016, end: 2016
  44. IMOVANE [Concomitant]
     Active Substance: ZOPICLONE
     Indication: INSOMNIA
     Dosage: 7.5 MG
     Route: 048
  45. ALPRAZOLAM. [Concomitant]
     Active Substance: ALPRAZOLAM
     Indication: ANXIETY
     Dosage: 0.25 MG
     Route: 048
  46. PRIMPERAN [Concomitant]
     Active Substance: METOCLOPRAMIDE HYDROCHLORIDE
     Indication: NAUSEA
     Dosage: 30 MG, IF NECESSARY
     Route: 048
     Dates: start: 2016
  47. VERSATIS 5 %, EMPLATRE MEDICAMENTEUX [Concomitant]
     Active Substance: LIDOCAINE
     Indication: PAIN
     Dosage: NOT COMMUNICATED
     Route: 003
     Dates: start: 2016, end: 2016
  48. CYTARABINE. [Concomitant]
     Active Substance: CYTARABINE
     Indication: B-CELL LYMPHOMA
     Dosage: TOTAL ADMINISTERED DOSE: 15242.5 MG
     Route: 042
     Dates: start: 2016
  49. OXYNORM 50 MG/ML, SOLUTION INJECTABLE [Concomitant]
     Active Substance: OXYCODONE HYDROCHLORIDE
     Indication: PAIN
     Route: 042
     Dates: start: 2016

REACTIONS (1)
  - Granulomatous liver disease [Recovering/Resolving]

NARRATIVE: CASE EVENT DATE: 201612
